FAERS Safety Report 8538989-1 (Version None)
Quarter: 2012Q3

REPORT INFORMATION
  Report Type: 
  Country: None (occurrence: None)
  Receive Date: 20120726
  Receipt Date: 20120723
  Transmission Date: 20120928
  Serious: Yes (Death, Hospitalization, Other)
  Sender: FDA-Public Use
  Company Number: PHHY2012AR014399

PATIENT
  Sex: Male

DRUGS (2)
  1. IMATINIB MESYLATE [Suspect]
     Indication: CHRONIC MYELOID LEUKAEMIA
     Dosage: 400 MG DAILY
     Dates: start: 20060701
  2. IMATINIB MESYLATE [Suspect]
     Dosage: 300 MG DAILY
     Dates: start: 20111201

REACTIONS (3)
  - THERMAL BURN [None]
  - MYOCARDIAL INFARCTION [None]
  - CARDIAC FAILURE [None]
